FAERS Safety Report 20502757 (Version 1)
Quarter: 2022Q1

REPORT INFORMATION
  Report Type: Spontaneous
  Country: US (occurrence: None)
  Receive Date: 20220222
  Receipt Date: 20220222
  Transmission Date: 20220424
  Serious: Yes (Hospitalization)
  Sender: FDA-Public Use
  Company Number: None

PATIENT
  Age: 12 Year
  Sex: Female
  Weight: 83.1 kg

DRUGS (5)
  1. DAUNORUBICIN [Suspect]
     Active Substance: DAUNORUBICIN
     Dates: end: 20220208
  2. ONCASPAR [Suspect]
     Active Substance: PEGASPARGASE
     Dates: end: 20220128
  3. VINCRISTINE SULFATE [Suspect]
     Active Substance: VINCRISTINE SULFATE
     Dates: end: 20220208
  4. CYTARABINE [Suspect]
     Active Substance: CYTARABINE
     Dates: end: 20220124
  5. METHOTREXATE [Suspect]
     Active Substance: METHOTREXATE
     Dates: end: 20220201

REACTIONS (9)
  - Hyperbilirubinaemia [None]
  - Abdominal discomfort [None]
  - Gastroenteritis Escherichia coli [None]
  - Diarrhoea haemorrhagic [None]
  - Dizziness [None]
  - Haemorrhoids [None]
  - Hepatitis A antigen positive [None]
  - Hypertension [None]
  - Hepatocellular injury [None]

NARRATIVE: CASE EVENT DATE: 20220215
